FAERS Safety Report 24977448 (Version 1)
Quarter: 2025Q1

REPORT INFORMATION
  Report Type: Spontaneous
  Country: US (occurrence: US)
  Receive Date: 20250217
  Receipt Date: 20250217
  Transmission Date: 20250409
  Serious: Yes (Other)
  Sender: BAUSCH AND LOMB
  Company Number: US-BAUSCH-BL-2025-002048

PATIENT
  Sex: Female

DRUGS (1)
  1. XIFAXAN [Suspect]
     Active Substance: RIFAXIMIN
     Indication: Hepatic cirrhosis
     Route: 048

REACTIONS (5)
  - Choking [Unknown]
  - Product use complaint [Unknown]
  - Product size issue [Unknown]
  - Product expiration date issue [Unknown]
  - Product lot number issue [Unknown]
